FAERS Safety Report 22272936 (Version 1)
Quarter: 2023Q2

REPORT INFORMATION
  Report Type: Report from Study
  Country: FR (occurrence: FR)
  Receive Date: 20230502
  Receipt Date: 20230502
  Transmission Date: 20230722
  Serious: Yes (Other)
  Sender: FDA-Public Use
  Company Number: FR-MYLANLABS-2023M1045167

PATIENT
  Age: 73 Year
  Sex: Female

DRUGS (9)
  1. AMIKACIN [Suspect]
     Active Substance: AMIKACIN
     Indication: Mycobacterium abscessus infection
     Dosage: DOSAGE: AT A CONCENTRATION OF 590 MG/8.4ML BY ORAL INHALATION VIA LAMIRA NEBULIZER SYSTEM
     Route: 055
     Dates: start: 20190513
  2. AMIKACIN [Suspect]
     Active Substance: AMIKACIN
     Indication: Pneumonia
  3. AZITHROMYCIN [Suspect]
     Active Substance: AZITHROMYCIN
     Indication: Mycobacterium abscessus infection
     Dosage: UNK
     Route: 065
  4. AZITHROMYCIN [Suspect]
     Active Substance: AZITHROMYCIN
     Indication: Pneumonia
  5. CLOFAZIMINE [Suspect]
     Active Substance: CLOFAZIMINE
     Indication: Mycobacterium abscessus infection
     Dosage: UNK
     Route: 065
  6. CLOFAZIMINE [Suspect]
     Active Substance: CLOFAZIMINE
     Indication: Pneumonia
  7. TEDIZOLID [Suspect]
     Active Substance: TEDIZOLID
     Indication: Mycobacterium abscessus infection
     Dosage: UNK
     Route: 065
  8. RIFABUTIN [Suspect]
     Active Substance: RIFABUTIN
     Indication: Mycobacterium abscessus infection
     Dosage: UNK
     Route: 065
  9. RIFABUTIN [Suspect]
     Active Substance: RIFABUTIN
     Indication: Pneumonia

REACTIONS (3)
  - Drug ineffective [Unknown]
  - Cough [Unknown]
  - Dysgeusia [Unknown]
